FAERS Safety Report 7939621-8 (Version None)
Quarter: 2011Q4

REPORT INFORMATION
  Report Type: 
  Country: None (occurrence: None)
  Receive Date: 20111125
  Receipt Date: 20111115
  Transmission Date: 20120403
  Serious: Yes (Hospitalization)
  Sender: FDA-Public Use
  Company Number: PHHY2011JP097756

PATIENT
  Age: 45 Year
  Sex: Female

DRUGS (2)
  1. GABAPENTIN [Suspect]
     Indication: NEURALGIA
     Dosage: 600 MG, PER DAY IN 3 DIVIDED DOSES
     Route: 048
  2. CARBAMAZEPINE [Suspect]
     Indication: NEURALGIA
     Dosage: 100 MG, QHS
     Route: 048

REACTIONS (8)
  - RESPIRATORY DISTRESS [None]
  - BLOOD CREATINE PHOSPHOKINASE INCREASED [None]
  - TOXICITY TO VARIOUS AGENTS [None]
  - NEUROLEPTIC MALIGNANT SYNDROME [None]
  - ALTERED STATE OF CONSCIOUSNESS [None]
  - PNEUMONIA ASPIRATION [None]
  - LUNG INFILTRATION [None]
  - PYREXIA [None]
